FAERS Safety Report 5255413-5 (Version None)
Quarter: 2007Q1

REPORT INFORMATION
  Report Type: 
  Country: None (occurrence: None)
  Receive Date: 20070305
  Receipt Date: 20070227
  Transmission Date: 20070707
  Serious: Yes (Death)
  Sender: FDA-Public Use
  Company Number: MY-MERCK-0703MYS00001

PATIENT
  Age: 60 Year
  Sex: Female

DRUGS (1)
  1. CANCIDAS [Suspect]
     Route: 041
     Dates: start: 20070201, end: 20070201

REACTIONS (1)
  - DEATH [None]
